FAERS Safety Report 6377422-5 (Version None)
Quarter: 2009Q3

REPORT INFORMATION
  Report Type: 
  Country: None (occurrence: None)
  Receive Date: 20090925
  Receipt Date: 20081002
  Transmission Date: 20100115
  Serious: Yes (Hospitalization)
  Sender: FDA-Public Use
  Company Number: FR-PFIZER INC-2009267997

PATIENT
  Age: 55 Year

DRUGS (9)
  1. CAMPTOSAR [Suspect]
     Indication: COLORECTAL CANCER METASTATIC
     Dosage: 300 MG, 1X/DAY
     Route: 042
     Dates: start: 20070920, end: 20080514
  2. FLUOROURACIL [Suspect]
     Indication: METASTATIC GASTRIC CANCER
     Dosage: 670 MG, 1X/DAY
     Route: 040
     Dates: start: 20070920, end: 20080514
  3. FLUOROURACIL [Suspect]
     Dosage: 4040 MG, 1X/DAY
     Route: 041
     Dates: start: 20070920, end: 20080514
  4. FOLINIC ACID [Suspect]
     Indication: METASTATIC GASTRIC CANCER
     Dosage: 670 MG, 1X/DAY
     Route: 042
     Dates: start: 20070920, end: 20080514
  5. AVASTIN [Suspect]
     Indication: METASTATIC GASTRIC CANCER
     Dosage: 295 MG, 1X/DAY
     Route: 042
     Dates: start: 20070920, end: 20080514
  6. DI-ANTALVIC [Concomitant]
     Dosage: 2 TO 6 CAPSULE, PER DAY
     Route: 048
  7. VALIUM [Concomitant]
     Indication: DEPRESSION
     Dosage: 10 MG, 1X/DAY
     Route: 048
  8. TARDYFERON [Concomitant]
     Dosage: 80 MG, 1X/DAY
     Route: 048
  9. ZYPREXA [Concomitant]
     Indication: DEPRESSION
     Dosage: 10 MG, 1X/DAY
     Route: 048

REACTIONS (1)
  - LIVER ABSCESS [None]
